FAERS Safety Report 8143813-5 (Version None)
Quarter: 2012Q1

REPORT INFORMATION
  Report Type: 
  Country: None (occurrence: None)
  Receive Date: 20120217
  Receipt Date: 20120206
  Transmission Date: 20120608
  Serious: Yes (Other)
  Sender: FDA-Public Use
  Company Number: DK-PFIZER INC-2012041024

PATIENT
  Age: 40 Year
  Sex: Female

DRUGS (1)
  1. PANTOPRAZOLE SODIUM [Suspect]
     Dosage: 80 MG, 1X/DAY
     Route: 065
     Dates: start: 20090101

REACTIONS (5)
  - ANAEMIA [None]
  - IRON DEFICIENCY [None]
  - HYPERTHYROIDISM [None]
  - FATIGUE [None]
  - RASH [None]
